FAERS Safety Report 5263035-5 (Version None)
Quarter: 2007Q1

REPORT INFORMATION
  Report Type: 
  Country: None (occurrence: None)
  Receive Date: 20070312
  Receipt Date: 20070305
  Transmission Date: 20070707
  Serious: Yes (Death)
  Sender: FDA-Public Use
  Company Number: BE-ROXANE LABORATORIES, INC-2007-DE-00847GD

PATIENT

DRUGS (4)
  1. SERTRALINE [Suspect]
  2. METHADONE HCL [Suspect]
  3. ALPRAZOLAM [Suspect]
  4. CLONAZEPAM [Suspect]

REACTIONS (1)
  - DRUG TOXICITY [None]
